FAERS Safety Report 4518701-3 (Version None)
Quarter: 2004Q4

REPORT INFORMATION
  Report Type: 
  Country: None (occurrence: None)
  Receive Date: 20041201
  Receipt Date: 20041119
  Transmission Date: 20050328
  Serious: Yes (Death)
  Sender: FDA-Public Use
  Company Number: HQWYE836503SEP04

PATIENT
  Age: 83 Year
  Sex: Female

DRUGS (9)
  1. CORDARONE [Suspect]
     Indication: ATRIAL FIBRILLATION
     Dosage: 100 MG 1X PER 1 DAY ORAL
     Route: 048
     Dates: end: 20030718
  2. ASPIRIN [Concomitant]
  3. ZOCOR [Concomitant]
  4. TANAKAN (GINKGO TREE LEAVES EXTRACT) [Concomitant]
  5. RAMIPRIL [Concomitant]
  6. CAPTOPRIL [Concomitant]
  7. LASIX [Concomitant]
  8. ALDACTONE [Concomitant]
  9. TENSIGRADYL (BEMETIZIDE/GUABENXAN) [Concomitant]

REACTIONS (15)
  - ANGINA PECTORIS [None]
  - ASTHENIA [None]
  - ATRIAL FIBRILLATION [None]
  - CARDIAC FAILURE [None]
  - CARDIOMEGALY [None]
  - DRUG INEFFECTIVE [None]
  - DYSPNOEA [None]
  - HYPOCAPNIA [None]
  - OXYGEN SATURATION DECREASED [None]
  - PLEURAL EFFUSION [None]
  - PNEUMONITIS [None]
  - PULMONARY FIBROSIS [None]
  - PULMONARY OEDEMA [None]
  - PYREXIA [None]
  - STAPHYLOCOCCAL SEPSIS [None]
